FAERS Safety Report 6499080-1 (Version None)
Quarter: 2009Q4

REPORT INFORMATION
  Report Type: 
  Country: None (occurrence: None)
  Receive Date: 20091127
  Receipt Date: 20090625
  Transmission Date: 20100525
  Serious: Yes (Other)
  Sender: FDA-Public Use
  Company Number: WAES 0711USA05510

PATIENT
  Age: 43 Year
  Sex: Female
  Weight: 58.514 kg

DRUGS (6)
  1. FOSAMAX [Suspect]
     Indication: OSTEOPOROSIS
     Dosage: 20 MG/UNK/PO
     Route: 048
     Dates: start: 20050101, end: 20061129
  2. FOSAMAX [Suspect]
     Dosage: PO
     Route: 048
  3. CALTRATE + D [Concomitant]
  4. PREMARIN [Concomitant]
  5. PRILOSEC [Concomitant]
  6. ESTROGENS (UNSPECIFIED) [Concomitant]

REACTIONS (28)
  - ADVERSE DRUG REACTION [None]
  - ANGIOEDEMA [None]
  - ANXIETY [None]
  - APPETITE DISORDER [None]
  - ARTHROPATHY [None]
  - BONE DISORDER [None]
  - CARPAL TUNNEL SYNDROME [None]
  - COMPLEX REGIONAL PAIN SYNDROME [None]
  - CRYING [None]
  - DENTAL CARIES [None]
  - DEPRESSION [None]
  - DRUG ADMINISTRATION ERROR [None]
  - DRUG HYPERSENSITIVITY [None]
  - DYSPNOEA [None]
  - GASTROINTESTINAL DISORDER [None]
  - HYPERTENSION [None]
  - HYPOAESTHESIA [None]
  - LIBIDO DECREASED [None]
  - LOOSE TOOTH [None]
  - MEDICAL DEVICE COMPLICATION [None]
  - MIGRAINE [None]
  - OSTEONECROSIS [None]
  - PARAESTHESIA [None]
  - PERICORONITIS [None]
  - PERIODONTITIS [None]
  - SEASONAL ALLERGY [None]
  - SYNOVIAL CYST [None]
  - TOOTH LOSS [None]
